FAERS Safety Report 11354915 (Version 3)
Quarter: 2016Q3

REPORT INFORMATION
  Report Type: Spontaneous
  Country: US (occurrence: US)
  Receive Date: 20150807
  Receipt Date: 20160830
  Transmission Date: 20161109
  Serious: Yes (Other)
  Sender: FDA-Public Use
  Company Number: US-JNJFOC-20150713996

PATIENT
  Sex: Male

DRUGS (6)
  1. RISPERDAL [Suspect]
     Active Substance: RISPERIDONE
     Indication: AUTISM SPECTRUM DISORDER
     Dosage: 0.5MG, 0.25MG, 1MG, 1.5 MG AND 4MG
     Route: 048
     Dates: start: 2000, end: 2007
  2. RISPERDAL [Suspect]
     Active Substance: RISPERIDONE
     Indication: OPPOSITIONAL DEFIANT DISORDER
     Dosage: 0.5MG, 0.25MG, 1MG, 1.5 MG AND 4MG
     Route: 048
     Dates: start: 2000, end: 2007
  3. RISPERDAL [Suspect]
     Active Substance: RISPERIDONE
     Indication: ANXIETY
     Dosage: 0.5MG, 0.25MG, 1MG, 1.5 MG AND 4MG
     Route: 048
     Dates: start: 2000, end: 2007
  4. RISPERDAL [Suspect]
     Active Substance: RISPERIDONE
     Indication: AUTISM SPECTRUM DISORDER
     Dosage: 0.5MG, 0.25MG, 1MG, 1.5 MG AND 4MG
     Route: 048
     Dates: start: 2000, end: 2007
  5. RISPERDAL [Suspect]
     Active Substance: RISPERIDONE
     Indication: AFFECTIVE DISORDER
     Dosage: 0.5MG, 0.25MG, 1MG, 1.5 MG AND 4MG
     Route: 048
     Dates: start: 2000, end: 2007
  6. RISPERDAL [Suspect]
     Active Substance: RISPERIDONE
     Indication: ATTENTION DEFICIT/HYPERACTIVITY DISORDER
     Dosage: 0.5MG, 0.25MG, 1MG, 1.5 MG AND 4MG
     Route: 048
     Dates: start: 2000, end: 2007

REACTIONS (2)
  - Abnormal weight gain [Unknown]
  - Gynaecomastia [Unknown]

NARRATIVE: CASE EVENT DATE: 2001
